FAERS Safety Report 10764375 (Version 1)
Quarter: 2015Q1

REPORT INFORMATION
  Report Type: Spontaneous
  Country: US (occurrence: US)
  Receive Date: 20150205
  Receipt Date: 20150205
  Transmission Date: 20150721
  Serious: Yes (Hospitalization, Other)
  Sender: FDA-Public Use
  Company Number: US-ROCHE-1524002

PATIENT
  Age: 19 Year
  Sex: Male

DRUGS (3)
  1. RITUXAN [Suspect]
     Active Substance: RITUXIMAB
     Dosage: SUBSEQUENTLY RECEIVED RITUXIMAB ON 21/JAN/2004 (600 MG), 28/APR/2004 (645 MG), 16/AUG/2004 (641 MG),
     Route: 042
     Dates: start: 20040121, end: 200509
  2. RITUXAN [Suspect]
     Active Substance: RITUXIMAB
     Indication: THROMBOTIC THROMBOCYTOPENIC PURPURA
     Dosage: QUARTERLY
     Route: 042
     Dates: start: 200305, end: 200509
  3. RITUXAN [Suspect]
     Active Substance: RITUXIMAB
     Dosage: DOSE:640 MG IN 64/CC. SUBSEQUENTLY RECEIVED RITUXIMAB ON 27/MAY/2003, 03/JUN/2003, 10/JUN/2003, 29/A
     Route: 042
     Dates: start: 20030520, end: 20030916

REACTIONS (8)
  - Depression [Unknown]
  - Myelitis transverse [Unknown]
  - Pneumonia [Unknown]
  - Off label use [Unknown]
  - Megacolon [Unknown]
  - Quadriplegia [Unknown]
  - Enterovirus infection [Unknown]
  - Acute respiratory failure [Unknown]

NARRATIVE: CASE EVENT DATE: 200509
